FAERS Safety Report 8392245-3 (Version None)
Quarter: 2012Q2

REPORT INFORMATION
  Report Type: 
  Country: None (occurrence: None)
  Receive Date: 20120529
  Receipt Date: 20120517
  Transmission Date: 20120825
  Serious: Yes (Other)
  Sender: FDA-Public Use
  Company Number: US-ASTRAZENECA-2011SE27082

PATIENT
  Age: 67 Year
  Sex: Male

DRUGS (2)
  1. CRESTOR [Suspect]
     Route: 048
  2. NEXIUM [Concomitant]
     Route: 048

REACTIONS (5)
  - NEURALGIA [None]
  - DIABETES MELLITUS [None]
  - NON-HODGKIN'S LYMPHOMA [None]
  - CANCER IN REMISSION [None]
  - CEREBROVASCULAR ACCIDENT [None]
